FAERS Safety Report 6538348-7 (Version None)
Quarter: 2010Q1

REPORT INFORMATION
  Report Type: 
  Country: None (occurrence: None)
  Receive Date: 20100111
  Receipt Date: 20091230
  Transmission Date: 20100710
  Serious: Yes (Hospitalization, Other)
  Sender: FDA-Public Use
  Company Number: 2010AP000019

PATIENT
  Sex: 0

DRUGS (2)
  1. CITALOPRAM HYDROBROMIDE [Suspect]
     Dosage: 20 MG TRPL
     Route: 064
     Dates: start: 20090903, end: 20091207
  2. ACETAMINOPHEN [Concomitant]

REACTIONS (2)
  - EXOMPHALOS [None]
  - MATERNAL DRUGS AFFECTING FOETUS [None]
